FAERS Safety Report 23892891 (Version 1)
Quarter: 2024Q2

REPORT INFORMATION
  Report Type: Spontaneous
  Country: JP (occurrence: JP)
  Receive Date: 20240524
  Receipt Date: 20240524
  Transmission Date: 20240716
  Serious: Yes (Hospitalization)
  Sender: FDA-Public Use
  Company Number: JP-002147023-NVSJ2024JP002895

PATIENT
  Sex: Male

DRUGS (1)
  1. RITALIN [Suspect]
     Active Substance: METHYLPHENIDATE HYDROCHLORIDE
     Indication: Neurodevelopmental disorder
     Dosage: UNK
     Route: 048

REACTIONS (4)
  - Attention deficit hyperactivity disorder [Unknown]
  - Drooling [Unknown]
  - Vision blurred [Unknown]
  - Headache [Unknown]
